APPROVED DRUG PRODUCT: EMETE-CON
Active Ingredient: BENZQUINAMIDE HYDROCHLORIDE
Strength: EQ 50MG BASE/VIAL
Dosage Form/Route: INJECTABLE;INJECTION
Application: N016820 | Product #001
Applicant: PFIZER INC
Approved: Approved Prior to Jan 1, 1982 | RLD: No | RS: No | Type: DISCN